FAERS Safety Report 4600382-1 (Version None)
Quarter: 2005Q1

REPORT INFORMATION
  Report Type: 
  Country: None (occurrence: None)
  Receive Date: 20050304
  Receipt Date: 20050223
  Transmission Date: 20050727
  Serious: Yes (Disabling)
  Sender: FDA-Public Use
  Company Number: 200501500

PATIENT
  Age: 55 Year
  Sex: Female

DRUGS (6)
  1. PRED FORTE [Suspect]
     Indication: IRITIS
     Dosage: 1 DROP Q2HR EYE
     Dates: start: 20031101, end: 20031101
  2. PRED FORTE [Suspect]
     Indication: IRITIS
     Dosage: 1 DROP QID EYE
     Dates: start: 20031101, end: 20031101
  3. PRED FORTE [Suspect]
     Indication: IRITIS
     Dosage: 1 DROP BID EYE
     Dates: start: 20031101, end: 20031101
  4. PRED FORTE [Suspect]
     Indication: IRITIS
     Dosage: 1 DROP QID EYE
     Dates: start: 20031201, end: 20031201
  5. PRED FORTE [Suspect]
     Indication: IRITIS
     Dosage: 1 DROP TID EYE
     Dates: start: 20031201, end: 20031201
  6. ALREX [Concomitant]

REACTIONS (2)
  - BLINDNESS UNILATERAL [None]
  - GLAUCOMA [None]
